FAERS Safety Report 8100028 (Version 8)
Quarter: 2014Q1

REPORT INFORMATION
  Report Type: Report from Study
  Country: KR (occurrence: KR)
  Receive Date: 20110822
  Receipt Date: 20140103
  Transmission Date: 20141002
  Serious: Yes (Death, Hospitalization, Other)
  Sender: FDA-Public Use
  Company Number: KR-ASTELLAS-2011US005096

PATIENT
  Age: 59 Year
  Sex: Male
  Weight: 59 kg

DRUGS (21)
  1. ERLOTINIB TABLET [Suspect]
     Indication: NON-SMALL CELL LUNG CANCER
     Dosage: 150 MG, UID/QD
     Route: 048
     Dates: start: 20110512
  2. TAMSULOSIN [Concomitant]
     Indication: PRODUCT USED FOR UNKNOWN INDICATION
     Dosage: 0.2 MG, UNKNOWN/D
     Route: 065
     Dates: start: 20110411, end: 20120805
  3. LANSOPRAZOLE [Concomitant]
     Indication: PRODUCT USED FOR UNKNOWN INDICATION
     Dosage: 15 MG, UNKNOWN/D
     Route: 065
     Dates: start: 20110331, end: 20111009
  4. EPERISONE [Concomitant]
     Indication: PRODUCT USED FOR UNKNOWN INDICATION
     Dosage: 150 MG, UNKNOWN/D
     Route: 065
     Dates: start: 20110415, end: 20111026
  5. BEARSE [Concomitant]
     Indication: PRODUCT USED FOR UNKNOWN INDICATION
     Dosage: 3 TABLETS, UID/QD
     Route: 065
     Dates: start: 20110331, end: 20110921
  6. TRIMEBUTINE MALEATE [Concomitant]
     Indication: PRODUCT USED FOR UNKNOWN INDICATION
     Dosage: 600 MG, UNKNOWN/D
     Route: 065
     Dates: start: 20110331, end: 20130204
  7. CLONAZEPAM [Concomitant]
     Indication: PRODUCT USED FOR UNKNOWN INDICATION
     Dosage: 1 MG, UNKNOWN/D
     Route: 065
     Dates: start: 20110415, end: 20111008
  8. TRAZODONE [Concomitant]
     Indication: PRODUCT USED FOR UNKNOWN INDICATION
     Dosage: 25 MG, UNKNOWN/D
     Route: 065
     Dates: start: 20110415, end: 20111008
  9. SUCRALFATE [Concomitant]
     Indication: PRODUCT USED FOR UNKNOWN INDICATION
     Dosage: 60 ML, UNKNOWN/D
     Route: 065
     Dates: start: 20110325, end: 20120712
  10. FERROUS SULFATE [Concomitant]
     Indication: PRODUCT USED FOR UNKNOWN INDICATION
     Dosage: UNK
     Route: 065
     Dates: start: 20110425, end: 20130204
  11. ERDOSTEINE [Concomitant]
     Indication: PRODUCT USED FOR UNKNOWN INDICATION
     Dosage: 900 MG, UNKNOWN/D
     Route: 065
     Dates: start: 20110502
  12. OXYCODONE [Concomitant]
     Indication: PRODUCT USED FOR UNKNOWN INDICATION
     Dosage: 40 MG, UNKNOWN/D
     Route: 065
     Dates: start: 20110327
  13. FENTANYL [Concomitant]
     Indication: PRODUCT USED FOR UNKNOWN INDICATION
     Dosage: 4.2 MG, UNKNOWN/D
     Route: 065
     Dates: start: 20110328
  14. FENTANYL [Concomitant]
     Dosage: 8.4 MG, UNKNOWN/D
     Route: 065
     Dates: start: 20110813
  15. ALPRAZOLAM [Concomitant]
     Indication: PRODUCT USED FOR UNKNOWN INDICATION
     Dosage: 0.25 MG, UNKNOWN/D
     Route: 065
     Dates: start: 20110608, end: 20120804
  16. PROPIVERINE [Concomitant]
     Indication: PRODUCT USED FOR UNKNOWN INDICATION
     Dosage: 10 MG, UNKNOWN/D
     Route: 065
     Dates: start: 20110608, end: 20120221
  17. MOSAPRIDE CITRATE [Concomitant]
     Indication: PRODUCT USED FOR UNKNOWN INDICATION
     Dosage: 15 MG, UNKNOWN/D
     Route: 065
     Dates: start: 20110609, end: 20110917
  18. HYDROCORTISONE [Concomitant]
     Indication: PRODUCT USED FOR UNKNOWN INDICATION
     Dosage: 10 G, UNKNOWN/D
     Route: 065
     Dates: start: 20110707
  19. MEGESTROL ACETATE [Concomitant]
     Indication: PRODUCT USED FOR UNKNOWN INDICATION
     Dosage: 10 ML, UNKNOWN/D
     Route: 065
     Dates: start: 20110707, end: 20111107
  20. LACTULOSE [Concomitant]
     Indication: PRODUCT USED FOR UNKNOWN INDICATION
     Dosage: 60 ML, UNKNOWN/D
     Route: 065
     Dates: start: 20110707, end: 20120801
  21. FINASTERIDE [Concomitant]
     Indication: PRODUCT USED FOR UNKNOWN INDICATION
     Dosage: 5 MG, UNKNOWN/D
     Route: 065
     Dates: start: 20110706, end: 20130204

REACTIONS (5)
  - Herpes zoster [Recovered/Resolved]
  - Malignant neoplasm progression [Fatal]
  - Metastases to spine [Unknown]
  - Pain in extremity [Recovered/Resolved]
  - Back pain [Not Recovered/Not Resolved]
